FAERS Safety Report 12807106 (Version 1)
Quarter: 2016Q4

REPORT INFORMATION
  Report Type: Spontaneous
  Country: US (occurrence: US)
  Receive Date: 20161003
  Receipt Date: 20161003
  Transmission Date: 20170207
  Serious: Yes (Hospitalization, Other)
  Sender: FDA-Public Use
  Company Number: None

PATIENT
  Age: 8 Year
  Sex: Male
  Weight: 48.5 kg

DRUGS (19)
  1. ERWINIA [Suspect]
     Active Substance: ASPARAGINASE ERWINIA CHRYSANTHEMI
     Indication: ACUTE LYMPHOCYTIC LEUKAEMIA
     Dosage: ?          OTHER FREQUENCY:TIW;?
     Route: 030
     Dates: start: 20160919, end: 20160930
  2. ZOFRAN [Concomitant]
     Active Substance: ONDANSETRON HYDROCHLORIDE
  3. ACYCLOVIR. [Concomitant]
     Active Substance: ACYCLOVIR
  4. FLUCONAZOLE. [Concomitant]
     Active Substance: FLUCONAZOLE
  5. OXYCODONE [Concomitant]
     Active Substance: OXYCODONE
  6. NS [Concomitant]
     Active Substance: SODIUM CHLORIDE
  7. ACETAMINOPHEN. [Concomitant]
     Active Substance: ACETAMINOPHEN
  8. COLACE [Concomitant]
     Active Substance: DOCUSATE SODIUM
  9. MERREM [Concomitant]
     Active Substance: MEROPENEM
  10. BENADRYL [Concomitant]
     Active Substance: DIPHENHYDRAMINE HYDROCHLORIDE
  11. IBUPROFEN. [Concomitant]
     Active Substance: IBUPROFEN
  12. CLINDAMCYIN [Concomitant]
  13. HEPARIN [Concomitant]
     Active Substance: HEPARIN SODIUM
  14. MONTELUKAST [Concomitant]
     Active Substance: MONTELUKAST SODIUM
  15. EMLA [Concomitant]
     Active Substance: LIDOCAINE\PRILOCAINE
  16. METHOTREXATE. [Concomitant]
     Active Substance: METHOTREXATE
  17. VINCRISTINE [Concomitant]
     Active Substance: VINCRISTINE
  18. MIRALAX [Concomitant]
     Active Substance: POLYETHYLENE GLYCOL 3350
  19. BIOTENE NOS [Concomitant]
     Active Substance: CETYLPYRIDINIUM CHLORIDE OR SODIUM FLUORIDE OR SODIUM MONOFLUOROPHOSPHATE OR GLUCOSE OXIDASE\LACTOFERRIN\LACTOPEROXIDASE BOVINE\LYSOZYME

REACTIONS (3)
  - Erythema [None]
  - Swelling [None]
  - Pyrexia [None]

NARRATIVE: CASE EVENT DATE: 20160929
